FAERS Safety Report 14394018 (Version 1)
Quarter: 2018Q1

REPORT INFORMATION
  Report Type: Spontaneous
  Country: US (occurrence: US)
  Receive Date: 20180116
  Receipt Date: 20180116
  Transmission Date: 20180509
  Serious: No
  Sender: FDA-Public Use
  Company Number: US-REGENERON PHARMACEUTICALS, INC.-2017-20024

PATIENT

DRUGS (1)
  1. EYLEA [Suspect]
     Active Substance: AFLIBERCEPT
     Indication: DIABETIC RETINOPATHY
     Dosage: 2 MG, UNK, OD
     Route: 031
     Dates: start: 201708, end: 201708

REACTIONS (3)
  - Ocular hyperaemia [Not Recovered/Not Resolved]
  - Bone pain [Recovered/Resolved]
  - Eye pain [Recovered/Resolved]
